FAERS Safety Report 8937719 (Version 2)
Quarter: 2013Q1

REPORT INFORMATION
  Report Type: Spontaneous
  Country: US (occurrence: None)
  Receive Date: 20121123
  Receipt Date: 20130108
  Transmission Date: 20140127
  Serious: Yes (Death, Other)
  Sender: FDA-Public Use
  Company Number: TPA2012A09158

PATIENT
  Age: 55 Year
  Sex: Female
  Weight: 104.33 kg

DRUGS (3)
  1. ACTOS (PIOGLITAZONE HYDROCHLORIDE) [Suspect]
     Indication: TYPE 2 DIABETES MELLITUS
     Dates: end: 20051204
  2. GLUCOPHAGE (METFORMIN HYDROCHLORIDE) [Concomitant]
  3. GLUCOTROL (GLIPIZIDE) [Concomitant]

REACTIONS (1)
  - Bladder cancer [None]
